FAERS Safety Report 16661632 (Version 1)
Quarter: 2019Q3

REPORT INFORMATION
  Report Type: Spontaneous
  Country: IT (occurrence: IT)
  Receive Date: 20190802
  Receipt Date: 20190802
  Transmission Date: 20191004
  Serious: Yes (Other)
  Sender: FDA-Public Use
  Company Number: IT-TOLMAR, INC.-TOLG20192323

PATIENT
  Age: 68 Year
  Sex: Female

DRUGS (1)
  1. IMIQUIMOD. [Suspect]
     Active Substance: IMIQUIMOD
     Indication: BASAL CELL CARCINOMA
     Dosage: UNKNOWN
     Route: 061

REACTIONS (2)
  - Dermatitis bullous [Recovering/Resolving]
  - Linear IgA disease [Recovering/Resolving]
